FAERS Safety Report 17462128 (Version 1)
Quarter: 2020Q1

REPORT INFORMATION
  Report Type: Spontaneous
  Country: US (occurrence: US)
  Receive Date: 20200226
  Receipt Date: 20200226
  Transmission Date: 20200409
  Serious: Yes (Other)
  Sender: FDA-Public Use
  Company Number: US-NOVOPROD-690413

PATIENT
  Age: 54 Year
  Sex: Male
  Weight: 104.31 kg

DRUGS (2)
  1. NOVOLOG [Concomitant]
     Active Substance: INSULIN ASPART
     Indication: TYPE 1 DIABETES MELLITUS
     Dosage: SLIDING SCALE
     Route: 058
     Dates: start: 20190503
  2. SAXENDA [Suspect]
     Active Substance: LIRAGLUTIDE
     Indication: OVERWEIGHT
     Dosage: 0.6 MG
     Route: 058
     Dates: start: 201906, end: 20190801

REACTIONS (5)
  - Off label use [Unknown]
  - Dehydration [Recovered/Resolved]
  - Weight increased [Unknown]
  - Renal impairment [Recovered/Resolved]
  - Penis disorder [Recovered/Resolved]

NARRATIVE: CASE EVENT DATE: 2019
